FAERS Safety Report 8071750-3 (Version None)
Quarter: 2012Q1

REPORT INFORMATION
  Report Type: 
  Country: None (occurrence: None)
  Receive Date: 20120125
  Receipt Date: 20120117
  Transmission Date: 20120608
  Serious: Yes (Hospitalization, Disabling, Other)
  Sender: FDA-Public Use
  Company Number: US-MERCK-1108USA00182

PATIENT
  Age: 71 Year
  Sex: Female
  Weight: 59 kg

DRUGS (10)
  1. FOSAMAX [Suspect]
     Route: 048
     Dates: start: 20080216, end: 20091110
  2. FOSAMAX [Suspect]
     Indication: OSTEOPOROSIS
     Route: 048
     Dates: start: 20010401, end: 20080101
  3. FOSAMAX [Suspect]
     Route: 048
     Dates: start: 19980401, end: 19980501
  4. FOSAMAX [Suspect]
     Route: 048
     Dates: start: 19980501, end: 20010401
  5. FOSAMAX [Suspect]
     Indication: ARTHRITIS
     Route: 048
     Dates: start: 20010401, end: 20080101
  6. FOSAMAX [Suspect]
     Route: 048
     Dates: start: 19980401, end: 19980501
  7. FOSAMAX [Suspect]
     Route: 048
     Dates: start: 19980501, end: 20010401
  8. CALCIUM (UNSPECIFIED) [Concomitant]
     Indication: OSTEOPOROSIS
     Route: 065
     Dates: start: 19970401
  9. VITAMIN D (UNSPECIFIED) [Concomitant]
     Indication: OSTEOPOROSIS
     Route: 065
     Dates: start: 19970401
  10. PREMARIN [Concomitant]
     Route: 065
     Dates: start: 19980401

REACTIONS (83)
  - OSTEOARTHRITIS [None]
  - GALLBLADDER DISORDER [None]
  - DYSURIA [None]
  - SCAPULA FRACTURE [None]
  - RETROGNATHIA [None]
  - SNORING [None]
  - DECREASED APPETITE [None]
  - LACERATION [None]
  - OSTEOPENIA [None]
  - CONTUSION [None]
  - FATIGUE [None]
  - BREAST CYST [None]
  - DIZZINESS [None]
  - HYPERSOMNIA [None]
  - HAEMATOMA [None]
  - RHEUMATOID ARTHRITIS [None]
  - MITRAL VALVE INCOMPETENCE [None]
  - RENAL FAILURE CHRONIC [None]
  - ARTHROPATHY [None]
  - FRACTURE NONUNION [None]
  - TYPE 2 DIABETES MELLITUS [None]
  - PATELLA FRACTURE [None]
  - LUMBAR VERTEBRAL FRACTURE [None]
  - DEEP VEIN THROMBOSIS [None]
  - EMPHYSEMA [None]
  - DYSPEPSIA [None]
  - JOINT DISLOCATION [None]
  - FALL [None]
  - INJURY [None]
  - GOITRE [None]
  - SCOLIOSIS [None]
  - CARPAL TUNNEL SYNDROME [None]
  - TRIGGER FINGER [None]
  - THROMBOSIS [None]
  - ROAD TRAFFIC ACCIDENT [None]
  - KYPHOSIS [None]
  - ISCHAEMIA [None]
  - GRAVITATIONAL OEDEMA [None]
  - CONSTIPATION [None]
  - BLISTER [None]
  - URINARY TRACT INFECTION [None]
  - PUBIS FRACTURE [None]
  - CARDIAC FAILURE [None]
  - RHINITIS ALLERGIC [None]
  - MALAISE [None]
  - CHEST PAIN [None]
  - CELLULITIS [None]
  - BLADDER PAIN [None]
  - STRESS FRACTURE [None]
  - MUSCULOSKELETAL PAIN [None]
  - RENAL FAILURE ACUTE [None]
  - OEDEMA PERIPHERAL [None]
  - ATRIAL FIBRILLATION [None]
  - ROTATOR CUFF SYNDROME [None]
  - RIB FRACTURE [None]
  - WEIGHT DECREASED [None]
  - OSTEOPOROSIS [None]
  - VISUAL ACUITY REDUCED [None]
  - OFF LABEL USE [None]
  - BACK PAIN [None]
  - LOW TURNOVER OSTEOPATHY [None]
  - CEREBRAL ATROPHY [None]
  - HYPERLIPIDAEMIA [None]
  - ULNAR TUNNEL SYNDROME [None]
  - FEMUR FRACTURE [None]
  - CARDIAC FAILURE CONGESTIVE [None]
  - SPINAL OSTEOARTHRITIS [None]
  - CORONARY ARTERY DISEASE [None]
  - VENTRICULAR EXTRASYSTOLES [None]
  - SKIN CANCER [None]
  - DEHYDRATION [None]
  - ANXIETY [None]
  - GAIT DISTURBANCE [None]
  - MUSCULOSKELETAL CHEST PAIN [None]
  - UPPER RESPIRATORY TRACT INFECTION [None]
  - BLOOD DISORDER [None]
  - CERVICAL VERTEBRAL FRACTURE [None]
  - PNEUMONIA [None]
  - OPEN WOUND [None]
  - LACUNAR INFARCTION [None]
  - INSOMNIA [None]
  - DEMENTIA [None]
  - BRADYCARDIA [None]
